FAERS Safety Report 6837644-3 (Version None)
Quarter: 2010Q3

REPORT INFORMATION
  Report Type: 
  Country: None (occurrence: None)
  Receive Date: 20100713
  Receipt Date: 20070518
  Transmission Date: 20110219
  Serious: No
  Sender: FDA-Public Use
  Company Number: US-PFIZER INC-2007041186

PATIENT
  Age: 34 Year
  Sex: Female
  Weight: 54.4 kg

DRUGS (3)
  1. CHANTIX [Suspect]
     Dates: end: 20070101
  2. ZOLOFT [Concomitant]
  3. ORAL CONTRACEPTIVE NOS [Concomitant]

REACTIONS (1)
  - CONSTIPATION [None]
